FAERS Safety Report 13171445 (Version 1)
Quarter: 2017Q1

REPORT INFORMATION
  Report Type: Spontaneous
  Country: RU (occurrence: RU)
  Receive Date: 20170201
  Receipt Date: 20170201
  Transmission Date: 20170428
  Serious: Yes (Life-Threatening, Other)
  Sender: FDA-Public Use
  Company Number: RU-IPSEN BIOPHARMACEUTICALS, INC.-2017-00720

PATIENT
  Sex: Female

DRUGS (1)
  1. DYSPORT [Suspect]
     Active Substance: ABOBOTULINUMTOXINA
     Indication: SKIN COSMETIC PROCEDURE
     Dosage: NOT REPORTED
     Route: 065

REACTIONS (7)
  - Loss of consciousness [Recovered/Resolved]
  - Pallor [Unknown]
  - Enuresis [Unknown]
  - Miosis [Unknown]
  - Anaphylactic shock [Unknown]
  - Suspected counterfeit product [Unknown]
  - Drug ineffective [Unknown]
